FAERS Safety Report 24242952 (Version 1)
Quarter: 2024Q3

REPORT INFORMATION
  Report Type: Spontaneous
  Country: US (occurrence: None)
  Receive Date: 20240822
  Receipt Date: 20240822
  Transmission Date: 20241016
  Serious: Yes (Hospitalization, Other)
  Sender: Public
  Company Number: None

PATIENT
  Age: 66 Year
  Sex: Female
  Weight: 74.25 kg

DRUGS (1)
  1. CLOPIDOGREL [Suspect]
     Active Substance: CLOPIDOGREL BISULFATE
     Dates: start: 20240803

REACTIONS (18)
  - Eye haemorrhage [None]
  - Pain in extremity [None]
  - Arthralgia [None]
  - Peripheral swelling [None]
  - Joint swelling [None]
  - Pain in extremity [None]
  - Peripheral swelling [None]
  - Symptom recurrence [None]
  - Therapy interrupted [None]
  - Blood pressure decreased [None]
  - Thrombosis [None]
  - Gait inability [None]
  - Abdominal pain [None]
  - Gastric haemorrhage [None]
  - Diarrhoea [None]
  - Transfusion [None]
  - Taste disorder [None]
  - Nausea [None]

NARRATIVE: CASE EVENT DATE: 20240803
